FAERS Safety Report 6457118-1 (Version None)
Quarter: 2009Q4

REPORT INFORMATION
  Report Type: 
  Country: None (occurrence: None)
  Receive Date: 20091125
  Receipt Date: 20091117
  Transmission Date: 20100525
  Serious: Yes (Hospitalization)
  Sender: FDA-Public Use
  Company Number: B0603221A

PATIENT
  Sex: Male
  Weight: 51 kg

DRUGS (4)
  1. ARIXTRA [Suspect]
     Indication: THROMBOSIS PROPHYLAXIS
     Dosage: 2.5MG PER DAY
     Route: 058
     Dates: start: 20091016, end: 20091019
  2. ALTAT [Concomitant]
     Indication: PROPHYLAXIS
     Dosage: 150MG PER DAY
     Route: 042
     Dates: start: 20091014, end: 20091017
  3. UNKNOWN DRUG [Concomitant]
     Indication: PROPHYLAXIS
     Dosage: 3G PER DAY
     Route: 042
     Dates: start: 20091015, end: 20091019
  4. FERRICON [Concomitant]
     Dosage: 50MG PER DAY
     Route: 042
     Dates: start: 20091006, end: 20091029

REACTIONS (5)
  - ABDOMINAL PAIN [None]
  - FAILURE TO ANASTOMOSE [None]
  - HAEMATOMA [None]
  - PERITONITIS [None]
  - SUTURE RUPTURE [None]
